FAERS Safety Report 14582097 (Version 1)
Quarter: 2018Q1

REPORT INFORMATION
  Report Type: Spontaneous
  Country: None (occurrence: DE)
  Receive Date: 20180228
  Receipt Date: 20180228
  Transmission Date: 20180509
  Serious: Yes (Other)
  Sender: FDA-Public Use
  Company Number: DE-GALEN LIMITED-AE-2018-0285

PATIENT
  Sex: Female
  Weight: 83 kg

DRUGS (20)
  1. PANTOZOL [Concomitant]
     Active Substance: PANTOPRAZOLE SODIUM
     Indication: GASTRITIS PROPHYLAXIS
     Dosage: 40 [MG/D]
     Route: 048
     Dates: start: 20170104, end: 20170127
  2. CEFUROXIM [Concomitant]
     Active Substance: CEFUROXIME
     Indication: SEPSIS
     Dosage: 500 [MG/D (2X250MG/D)]
     Route: 048
     Dates: start: 20170104, end: 20170109
  3. SALVIATHYMOL [Concomitant]
     Indication: STOMATITIS
     Route: 049
     Dates: start: 20170104, end: 20170104
  4. DOLANTIN [Concomitant]
     Active Substance: MEPERIDINE
     Indication: PAIN
     Dosage: 75 [MG/D (MAX.)]
     Route: 041
     Dates: start: 20170110, end: 20170110
  5. IBUPROFEN. [Concomitant]
     Active Substance: IBUPROFEN
     Indication: PAIN
     Dosage: 1200 [MG/D (MAX.)]
     Route: 048
     Dates: start: 20170109, end: 20170111
  6. METRONIDAZOL [Concomitant]
     Active Substance: METRONIDAZOLE
     Indication: SEPSIS
     Dosage: 1500 [MG/D (3X500MG)]
     Route: 041
     Dates: start: 20170111, end: 20170127
  7. VANCOMYCIN [Concomitant]
     Active Substance: VANCOMYCIN
     Indication: INFECTION
     Dosage: 2000 [MG/D (2X1000 MG)]
     Route: 041
     Dates: start: 20170110, end: 20170127
  8. KALIUMCHLORIDLOESUNG [Concomitant]
     Indication: HYPOKALAEMIA
     Dosage: 50 [ML/D]
     Route: 041
     Dates: start: 20170110, end: 20170127
  9. KALINOR-BRAUSETABLETTEN [Concomitant]
     Active Substance: POTASSIUM CARBONATE\POTASSIUM CITRATE
     Indication: HYPOKALAEMIA
     Route: 048
     Dates: start: 20170108, end: 20170109
  10. FRAGMIN P [Concomitant]
     Active Substance: DALTEPARIN SODIUM
     Indication: THROMBOSIS PROPHYLAXIS
     Dosage: 5000 [I.E./D]
     Route: 058
     Dates: start: 20170104, end: 20170111
  11. DAUNORUBICIN [Suspect]
     Active Substance: DAUNORUBICIN
     Indication: ACUTE MYELOID LEUKAEMIA
     Dosage: 168.2 [MG/D]
     Route: 041
     Dates: start: 20170109, end: 20170111
  12. AMPHO-MORONAL SUSPENSION [Concomitant]
     Indication: OROPHARYNGEAL CANDIDIASIS
     Route: 049
     Dates: start: 20170104, end: 20170127
  13. CYTARABINE. [Suspect]
     Active Substance: CYTARABINE
     Indication: ACUTE MYELOID LEUKAEMIA
     Dosage: 187 [MG/D]
     Route: 041
     Dates: start: 20170106, end: 20170112
  14. PROGESTERONE. [Concomitant]
     Active Substance: PROGESTERONE
     Indication: PROPHYLAXIS OF ABORTION
     Dosage: 200 [MG/D]
     Route: 048
     Dates: start: 20170104, end: 20170113
  15. PERFALGAN [Concomitant]
     Active Substance: ACETAMINOPHEN
     Indication: PAIN
     Dosage: 3000 [MG/D (MAX.)]
     Route: 041
     Dates: start: 20170104, end: 20170111
  16. ZIENAM [Concomitant]
     Active Substance: CILASTATIN SODIUM\IMIPENEM
     Indication: INFECTION
     Dosage: 2000 [MG/D (4X500MG)/2000 [MG/D (4X500MG)]
     Route: 041
     Dates: start: 20170110, end: 20170127
  17. MCP INFUSIONSLOESUNG [Concomitant]
     Indication: NAUSEA
     Dosage: 30 [MG/D]
     Route: 041
     Dates: start: 20170104, end: 20170127
  18. I-THYROXIN [Concomitant]
     Indication: HYPOTHYROIDISM
     Dosage: 125 [UG/D]
     Route: 048
     Dates: start: 20160923, end: 20170127
  19. NOVALGIN (METAMIZOLE SODIUM) [Concomitant]
     Active Substance: METAMIZOLE SODIUM
     Indication: PAIN
     Dosage: 5250 [MG/D (MAX.)]
     Route: 041
     Dates: start: 20170104, end: 20170109
  20. CEFTAZIDIME. [Concomitant]
     Active Substance: CEFTAZIDIME
     Indication: SEPSIS
     Dosage: 6000 [MG/D (3X2000MG)]
     Route: 041
     Dates: start: 20170109, end: 20170110

REACTIONS (2)
  - Abortion spontaneous [Recovered/Resolved]
  - Foetal exposure during pregnancy [Recovered/Resolved]
